FAERS Safety Report 23714882 (Version 1)
Quarter: 2024Q2

REPORT INFORMATION
  Report Type: Spontaneous
  Country: NL (occurrence: NL)
  Receive Date: 20240406
  Receipt Date: 20240406
  Transmission Date: 20240715
  Serious: Yes (Hospitalization)
  Sender: FDA-Public Use
  Company Number: None

PATIENT
  Age: 71 Year
  Sex: Male
  Weight: 71 kg

DRUGS (10)
  1. CISPLATIN [Suspect]
     Active Substance: CISPLATIN
     Indication: Lung adenocarcinoma stage IV
     Dosage: STRENGTH : 1 MG/ ML, BASICALLY EVERY 3 WEEKS
     Dates: start: 20230814, end: 20240223
  2. PEMETREXED [Suspect]
     Active Substance: PEMETREXED
     Indication: Lung adenocarcinoma stage IV
     Dosage: STRENGTH: 25 MG/ML, BASICALLY EVERY 3 WEEK
     Dates: start: 20230814, end: 20240223
  3. PEMBROLIZUMAB [Suspect]
     Active Substance: PEMBROLIZUMAB
     Indication: Lung adenocarcinoma stage IV
     Dosage: STRENGTH: 25 MG/ML VIAL 4 ML, 200 MG, BASICALLY EVERY 3 WEEKS
     Dates: start: 20230814, end: 20240223
  4. TAMSULOSIN [Concomitant]
     Active Substance: TAMSULOSIN
     Dosage: STRENGTH: 0.4 MG, MODIFIED-RELEASE CAPSULE
  5. SUCRALFATE [Concomitant]
     Active Substance: SUCRALFATE
     Dosage: STRENGTH: 1 GM
  6. POLYETHYLENE GLYCOLS [Concomitant]
     Active Substance: POLYETHYLENE GLYCOLS
  7. PANTOPRAZOLE [Concomitant]
     Active Substance: PANTOPRAZOLE
     Dosage: STRENGTH: 40 MG
  8. DOMPERIDONE [Concomitant]
     Active Substance: DOMPERIDONE
     Dosage: STRENGTH: 10 MG
  9. APIXABAN [Concomitant]
     Active Substance: APIXABAN
     Dosage: STRENGTH: 5 MG
  10. OXAZEPAM [Concomitant]
     Active Substance: OXAZEPAM
     Dosage: STRENGTH: 10 MG

REACTIONS (1)
  - Immune-mediated cholangitis [Not Recovered/Not Resolved]
